FAERS Safety Report 8530720-9 (Version None)
Quarter: 2012Q3

REPORT INFORMATION
  Report Type: 
  Country: None (occurrence: None)
  Receive Date: 20120723
  Receipt Date: 20120719
  Transmission Date: 20120928
  Serious: No
  Sender: FDA-Public Use
  Company Number: US-B.I. PHARMACEUTICALS,INC./RIDGEFIELD-2012-BP-16241BP

PATIENT
  Sex: Female

DRUGS (11)
  1. LOVAZA [Concomitant]
  2. VITAMIN D [Concomitant]
     Indication: SUPPLEMENTATION THERAPY
  3. PRADAXA [Suspect]
     Indication: ATRIAL FIBRILLATION
     Dosage: 300 MG
     Route: 048
     Dates: start: 20100101
  4. MAGNESIUM SULFATE [Concomitant]
  5. PRADAXA [Suspect]
     Dosage: 150 MG
     Route: 048
  6. FUROSEMIDE [Concomitant]
     Indication: FLUID RETENTION
  7. LISINOPRIL [Concomitant]
     Indication: BLOOD PRESSURE
  8. ASCORBIC ACID [Concomitant]
     Indication: SUPPLEMENTATION THERAPY
  9. VITAMIN B-12 [Concomitant]
  10. CALCIUM [Concomitant]
  11. LEVOTHYROXINE SODIUM [Concomitant]
     Indication: THYROID DISORDER

REACTIONS (3)
  - ASTHENIA [None]
  - DYSPNOEA [None]
  - HYPOTENSION [None]
